FAERS Safety Report 9326010 (Version 1)
Quarter: 2013Q2

REPORT INFORMATION
  Report Type: Spontaneous
  Country: US (occurrence: US)
  Receive Date: 20130604
  Receipt Date: 20130604
  Transmission Date: 20140414
  Serious: No
  Sender: FDA-Public Use
  Company Number: US-009507513-1305USA014655

PATIENT
  Age: 4 Year
  Sex: Male

DRUGS (2)
  1. CLARITIN CHEWABLE TABLETS [Suspect]
     Indication: HYPERSENSITIVITY
     Dosage: 5 MG, QD
     Route: 048
     Dates: start: 20130517
  2. CLARITIN CHEWABLE TABLETS [Suspect]
     Indication: HEADACHE

REACTIONS (1)
  - Rash macular [Not Recovered/Not Resolved]
